FAERS Safety Report 9454353 (Version 4)
Quarter: 2013Q4

REPORT INFORMATION
  Report Type: Report from Study
  Country: DE (occurrence: DE)
  Receive Date: 20130812
  Receipt Date: 20131128
  Transmission Date: 20140711
  Serious: Yes (Hospitalization)
  Sender: FDA-Public Use
  Company Number: DE-BRISTOL-MYERS SQUIBB COMPANY-19183284

PATIENT
  Age: 66 Year
  Sex: Male
  Weight: 87 kg

DRUGS (10)
  1. ERBITUX SOLN FOR INF [Suspect]
     Indication: COLORECTAL CANCER METASTATIC
     Dosage: RESUMED ON 22 AUG 2013
     Route: 042
     Dates: start: 20130606, end: 20130704
  2. 5-FLUOROURACIL [Concomitant]
     Indication: COLORECTAL CANCER METASTATIC
     Dates: start: 20130523
  3. OXALIPLATIN [Concomitant]
     Indication: COLORECTAL CANCER METASTATIC
     Dates: start: 20130523
  4. CALCIUM FOLINATE [Concomitant]
     Indication: COLORECTAL CANCER METASTATIC
     Dates: start: 20130523
  5. GLUCOSE [Concomitant]
     Indication: PREMEDICATION
     Dates: start: 20130606, end: 20130620
  6. MAGNESIUM [Concomitant]
     Indication: PREMEDICATION
     Dates: start: 20130606, end: 20130620
  7. CALCIUM [Concomitant]
     Indication: PREMEDICATION
     Dates: start: 20130606, end: 20130620
  8. BISOPROLOL [Concomitant]
     Indication: HYPERTENSION
     Route: 048
     Dates: start: 20100101
  9. AMLODIPINE [Concomitant]
     Indication: HYPERTENSION
     Route: 048
     Dates: start: 20100101
  10. PANTOZOL [Concomitant]
     Indication: HYPERCHLORHYDRIA
     Route: 048
     Dates: start: 20100101

REACTIONS (2)
  - Pancytopenia [Recovered/Resolved]
  - Device related infection [Recovered/Resolved]
